FAERS Safety Report 9559336 (Version 1)
Quarter: 2013Q3

REPORT INFORMATION
  Report Type: Spontaneous
  Country: US (occurrence: US)
  Receive Date: 20130927
  Receipt Date: 20130927
  Transmission Date: 20140515
  Serious: Yes (Disabling, Other)
  Sender: FDA-Public Use
  Company Number: PHEH2013US019990

PATIENT
  Sex: Male

DRUGS (1)
  1. ARCAPTA [Suspect]
     Dosage: UNK UKN, UNK

REACTIONS (2)
  - Pulmonary embolism [Unknown]
  - Hypoacusis [Unknown]
